FAERS Safety Report 4407611-8 (Version None)
Quarter: 2004Q3

REPORT INFORMATION
  Report Type: 
  Country: None (occurrence: None)
  Receive Date: 20040721
  Receipt Date: 20040712
  Transmission Date: 20050211
  Serious: Yes (Hospitalization)
  Sender: FDA-Public Use
  Company Number: A02200400116

PATIENT
  Age: 82 Year
  Sex: Female

DRUGS (3)
  1. STILNOX - (ZOLPIDEM) - TABLET - 10 MG [Suspect]
     Dosage: 10 MG OD  ORAL
     Route: 048
     Dates: start: 20031101, end: 20031123
  2. PAROXETINE HCL [Suspect]
     Dosage: 10 MG OD ORAL
     Route: 048
     Dates: start: 20031101, end: 20031101
  3. VIVALAN (VILOXAZINE HYDROCHLORIDE) [Concomitant]

REACTIONS (6)
  - CONFUSIONAL STATE [None]
  - DEHYDRATION [None]
  - DISORIENTATION [None]
  - HEPATITIS [None]
  - LABORATORY TEST INTERFERENCE [None]
  - PYREXIA [None]
